FAERS Safety Report 17027147 (Version 1)
Quarter: 2019Q4

REPORT INFORMATION
  Report Type: Spontaneous
  Country: GB (occurrence: GB)
  Receive Date: 20191113
  Receipt Date: 20191113
  Transmission Date: 20200122
  Serious: Yes (Hospitalization)
  Sender: FDA-Public Use
  Company Number: GB-009507513-1911GBR002014

PATIENT
  Age: 26 Year
  Sex: Female

DRUGS (1)
  1. NEXPLANON [Suspect]
     Active Substance: ETONOGESTREL
     Indication: CONTRACEPTION
     Dosage: UNK
     Route: 059

REACTIONS (4)
  - Pregnancy with implant contraceptive [Recovered/Resolved]
  - Maternal exposure during pregnancy [Unknown]
  - Ectopic pregnancy [Recovered/Resolved]
  - Vaginal haemorrhage [Unknown]
